FAERS Safety Report 11715493 (Version 2)
Quarter: 2015Q4

REPORT INFORMATION
  Report Type: Spontaneous
  Country: US (occurrence: US)
  Receive Date: 20151104
  Receipt Date: 20151110
  Transmission Date: 20160304
  Serious: No
  Sender: FDA-Public Use
  Company Number: US-ELI_LILLY_AND_COMPANY-US201104005444

PATIENT
  Age: 70 Year
  Sex: Female

DRUGS (6)
  1. FORTEO [Suspect]
     Active Substance: TERIPARATIDE
     Dosage: 20 UG, QD
     Route: 065
     Dates: end: 20110724
  2. FORTEO [Suspect]
     Active Substance: TERIPARATIDE
     Indication: OSTEOPOROSIS
     Dosage: 20 UG, QD
     Route: 065
     Dates: start: 20110407
  3. CALCIUM [Concomitant]
     Active Substance: CALCIUM
  4. FORTEO [Suspect]
     Active Substance: TERIPARATIDE
     Dosage: 20 UG, QD
     Route: 065
  5. FORTEO [Suspect]
     Active Substance: TERIPARATIDE
     Dosage: 20 UG, QD
     Route: 065
  6. FORTEO [Suspect]
     Active Substance: TERIPARATIDE
     Dosage: 20 UG, QD
     Route: 065
     Dates: start: 20111016, end: 20111018

REACTIONS (18)
  - Injection site erythema [Not Recovered/Not Resolved]
  - Cold sweat [Recovered/Resolved]
  - Injection site pain [Unknown]
  - Limb injury [Unknown]
  - Blood calcium increased [Unknown]
  - Atrial fibrillation [Recovered/Resolved]
  - Malaise [Unknown]
  - Dyspnoea [Unknown]
  - Hypertension [Unknown]
  - Blood pressure fluctuation [Recovered/Resolved]
  - Palpitations [Unknown]
  - Dizziness [Not Recovered/Not Resolved]
  - Fear [Unknown]
  - Intentional product misuse [Unknown]
  - Cardiac flutter [Unknown]
  - Heart rate irregular [Recovered/Resolved]
  - Contusion [Unknown]
  - Heart rate increased [Not Recovered/Not Resolved]

NARRATIVE: CASE EVENT DATE: 20110410
